FAERS Safety Report 24681281 (Version 2)
Quarter: 2025Q3

REPORT INFORMATION
  Report Type: Report from Study
  Country: US (occurrence: US)
  Receive Date: 20241129
  Receipt Date: 20250809
  Transmission Date: 20251021
  Serious: Yes (Other)
  Sender: ALEXION PHARMACEUTICALS
  Company Number: US-AstraZeneca-202411USA019959US

PATIENT
  Sex: Female

DRUGS (1)
  1. STRENSIQ [Suspect]
     Active Substance: ASFOTASE ALFA
     Route: 065

REACTIONS (14)
  - Syncope [Unknown]
  - Craniofacial fracture [Unknown]
  - Gait disturbance [Unknown]
  - Fall [Unknown]
  - Muscular weakness [Unknown]
  - Balance disorder [Unknown]
  - Malaise [Unknown]
  - Weight decreased [Unknown]
  - Arthritis [Unknown]
  - Joint swelling [Unknown]
  - Neck pain [Unknown]
  - Pain [Unknown]
  - Fatigue [Unknown]
  - Muscle strength abnormal [Unknown]

NARRATIVE: CASE EVENT DATE: 20240801
